FAERS Safety Report 8363532-X (Version None)
Quarter: 2012Q2

REPORT INFORMATION
  Report Type: 
  Country: None (occurrence: None)
  Receive Date: 20120516
  Receipt Date: 20120508
  Transmission Date: 20120825
  Serious: Yes (Death, Congenital Anomaly)
  Sender: FDA-Public Use
  Company Number: PHHY2012CH041220

PATIENT

DRUGS (8)
  1. RESYL PLUS [Suspect]
     Indication: BRONCHITIS
     Dosage: MOTHERS DOSE: THRICE PER DAY
     Route: 064
     Dates: start: 20111217, end: 20111219
  2. IBUPROFEN TABLETS [Suspect]
     Indication: BRONCHITIS
     Dosage: UNK
     Route: 064
     Dates: start: 20111217
  3. VOLTAREN [Suspect]
     Indication: BRONCHITIS
     Dosage: UNK
     Route: 064
     Dates: start: 20111217, end: 20111201
  4. ACETAMINOPHEN [Suspect]
     Dosage: MOTHERS DOSE: 4 PER DAY
     Route: 064
     Dates: start: 20111217
  5. DIPYRONE TAB [Suspect]
     Indication: BRONCHITIS
     Dosage: MOTHERS DOSE: 2 DF, PER DAY
     Route: 064
     Dates: start: 20111217, end: 20111220
  6. SYMBICORT [Suspect]
     Indication: BRONCHITIS
     Dosage: UNK
     Route: 064
     Dates: start: 20111217, end: 20111218
  7. MYDOCALM [Suspect]
     Indication: BRONCHITIS
     Dosage: MOTHERS DOSE: 5 PER DAY
     Route: 064
     Dates: start: 20111217, end: 20111221
  8. SOLMUCOL [Suspect]
     Indication: BRONCHITIS
     Dosage: MOTHERS DOSE: 2 DF, PER DAY
     Route: 064
     Dates: start: 20111217, end: 20111219

REACTIONS (3)
  - ABORTION SPONTANEOUS [None]
  - FOETAL EXPOSURE DURING PREGNANCY [None]
  - TRISOMY 21 [None]
